FAERS Safety Report 6299223-9 (Version None)
Quarter: 2009Q3

REPORT INFORMATION
  Report Type: 
  Country: None (occurrence: None)
  Receive Date: 20090806
  Receipt Date: 20090730
  Transmission Date: 20100115
  Serious: Yes (Hospitalization, Other)
  Sender: FDA-Public Use
  Company Number: GB-PFIZER INC-2009190885

PATIENT
  Age: 57 Year

DRUGS (3)
  1. FESOTERODINE [Suspect]
     Indication: HYPERTONIC BLADDER
     Dosage: 4 MG, 1X/DAY
     Route: 048
     Dates: start: 20090220
  2. EVOREL [Concomitant]
     Dosage: UNK
     Route: 062
     Dates: start: 19980101
  3. TESTOSTERONE [Concomitant]
     Dosage: UNK
     Route: 058
     Dates: start: 19980101

REACTIONS (1)
  - GASTRITIS [None]
